FAERS Safety Report 24020619 (Version 5)
Quarter: 2025Q2

REPORT INFORMATION
  Report Type: Spontaneous
  Country: DE (occurrence: DE)
  Receive Date: 20240627
  Receipt Date: 20250506
  Transmission Date: 20250716
  Serious: Yes (Life-Threatening, Hospitalization, Other)
  Sender: BIOGEN
  Company Number: DE-ROCHE-3438611

PATIENT
  Age: 57 Year
  Sex: Female
  Weight: 96 kg

DRUGS (6)
  1. DALFAMPRIDINE [Suspect]
     Active Substance: DALFAMPRIDINE
     Indication: Product used for unknown indication
     Route: 050
     Dates: start: 20150730
  2. CLADRIBINE [Suspect]
     Active Substance: CLADRIBINE
     Indication: Relapsing multiple sclerosis
     Route: 050
     Dates: start: 20230105
  3. OCREVUS [Suspect]
     Active Substance: OCRELIZUMAB
     Indication: Relapsing multiple sclerosis
     Dosage: ON 28/OCT/2019, SHE RECEIVED MOST RECENT DOSE OF IV OCRELIZUMAB 300 MG.
     Route: 050
     Dates: start: 20191014
  4. OCREVUS [Suspect]
     Active Substance: OCRELIZUMAB
     Route: 050
     Dates: start: 20191014, end: 20191028
  5. TYSABRI [Suspect]
     Active Substance: NATALIZUMAB
     Indication: Relapsing multiple sclerosis
     Route: 050
     Dates: start: 20200716, end: 20221103
  6. CHOLECALCIFEROL [Concomitant]
     Active Substance: CHOLECALCIFEROL
     Indication: Product used for unknown indication
     Route: 050
     Dates: start: 20161215

REACTIONS (6)
  - Infarction [Recovered/Resolved]
  - Cerebral infarction [Recovered/Resolved with Sequelae]
  - Cerebral infarction [Recovered/Resolved with Sequelae]
  - Uterine cancer [Recovered/Resolved]
  - Endocarditis noninfective [Recovered/Resolved]
  - Deep vein thrombosis [Recovered/Resolved with Sequelae]

NARRATIVE: CASE EVENT DATE: 20240108
